FAERS Safety Report 8155462-3 (Version None)
Quarter: 2012Q1

REPORT INFORMATION
  Report Type: 
  Country: None (occurrence: None)
  Receive Date: 20120215
  Receipt Date: 20120208
  Transmission Date: 20120608
  Serious: Yes (Hospitalization, Disabling)
  Sender: FDA-Public Use
  Company Number: WAES 1112USA02991

PATIENT
  Age: 69 Year
  Sex: Male

DRUGS (27)
  1. HIRUDOID [Concomitant]
  2. MG OXIDE [Concomitant]
  3. LAC-B [Concomitant]
  4. MUCOSTA [Concomitant]
  5. DECADRON [Suspect]
     Indication: PYREXIA
     Dosage: UNK;PO, 0.5 MG/DAILY, 1 MG/DAILY, 2 MG/DAILY
     Route: 048
     Dates: start: 20110825, end: 20111013
  6. DECADRON [Suspect]
     Indication: PYREXIA
     Dosage: UNK;PO, 0.5 MG/DAILY, 1 MG/DAILY, 2 MG/DAILY
     Route: 048
     Dates: start: 20111014, end: 20111028
  7. DECADRON [Suspect]
     Indication: PYREXIA
     Dosage: UNK;PO, 0.5 MG/DAILY, 1 MG/DAILY, 2 MG/DAILY
     Route: 048
     Dates: start: 20111029
  8. DECADRON [Suspect]
     Indication: PYREXIA
     Dosage: UNK;PO, 0.5 MG/DAILY, 1 MG/DAILY, 2 MG/DAILY
     Route: 048
     Dates: start: 20110618, end: 20110824
  9. BLINDED THERAPY [Suspect]
     Indication: METASTATIC RENAL CELL CARCINOMA
     Dosage: UNK;PO
     Route: 048
     Dates: start: 20101214, end: 20110714
  10. PRORENAL [Concomitant]
  11. GASMOTIN [Concomitant]
  12. PURSENNID (SENNA) [Concomitant]
  13. OXYCONTIN [Suspect]
     Indication: PAIN
     Dosage: 40 MG/BID;PO, 50 MG/BID;PO
     Route: 048
     Dates: start: 20110507, end: 20110616
  14. OXYCONTIN [Suspect]
     Indication: PAIN
     Dosage: 40 MG/BID;PO, 50 MG/BID;PO
     Route: 048
     Dates: start: 20110617
  15. DAI-KENCHU-TO [Concomitant]
  16. TELEMINSOFT [Concomitant]
  17. ZOMETA [Concomitant]
  18. ACETAMINOPHEN [Concomitant]
  19. LANSOPRAZOLE [Concomitant]
  20. TIZANIDINE HCL [Concomitant]
  21. AXITINIB [Suspect]
     Indication: METASTATIC RENAL CELL CARCINOMA
     Dosage: 5 MG/BID;PO, 5 MG/BID;PO
     Route: 048
     Dates: start: 20110729, end: 20110818
  22. AXITINIB [Suspect]
     Indication: METASTATIC RENAL CELL CARCINOMA
     Dosage: 5 MG/BID;PO, 5 MG/BID;PO
     Route: 048
     Dates: start: 20110827, end: 20110926
  23. AXITINIB [Suspect]
     Indication: METASTATIC RENAL CELL CARCINOMA
     Dosage: 5 MG/BID;PO, 5 MG/BID;PO
     Route: 048
     Dates: start: 20101116, end: 20110714
  24. OXYCODONE HYDROCHLORIDE [Suspect]
     Indication: PAIN
     Dosage: PO
     Route: 048
     Dates: start: 20110506
  25. MOBIC [Concomitant]
  26. NORVASC [Concomitant]
  27. OLMESARTAN MEDOXOMIL [Concomitant]

REACTIONS (6)
  - PYREXIA [None]
  - EXTRADURAL ABSCESS [None]
  - VOMITING [None]
  - ABDOMINAL DISTENSION [None]
  - STOMATITIS [None]
  - ENTEROCOLITIS [None]
